FAERS Safety Report 16544206 (Version 2)
Quarter: 2019Q3

REPORT INFORMATION
  Report Type: Spontaneous
  Country: US (occurrence: US)
  Receive Date: 20190709
  Receipt Date: 20190712
  Transmission Date: 20191004
  Serious: No
  Sender: FDA-Public Use
  Company Number: US-PFIZER INC-2019276483

PATIENT
  Age: 55 Year
  Sex: Female
  Weight: 68.27 kg

DRUGS (3)
  1. LYRICA [Suspect]
     Active Substance: PREGABALIN
     Indication: SPINAL FUSION SURGERY
     Dosage: 150 MG, 2X/DAY
     Route: 048
     Dates: start: 2018
  2. LYRICA [Suspect]
     Active Substance: PREGABALIN
     Indication: NEURALGIA
     Dosage: 150 MG, 4X/DAY
     Route: 048
     Dates: start: 20190523
  3. CANNABIDIOL [Concomitant]
     Active Substance: CANNABIDIOL
     Indication: BURNING SENSATION
     Dosage: UNK, 3-4 TIMES DAILY AND SOMETIMES IN THE MIDDLE OF THE NIGHT
     Route: 048

REACTIONS (4)
  - Pain [Unknown]
  - Discomfort [Unknown]
  - Off label use [Not Recovered/Not Resolved]
  - Product use issue [Not Recovered/Not Resolved]

NARRATIVE: CASE EVENT DATE: 20190523
